FAERS Safety Report 9747713 (Version 1)
Quarter: 2013Q4

REPORT INFORMATION
  Report Type: Spontaneous
  Country: JP (occurrence: None)
  Receive Date: 20131206
  Receipt Date: 20131206
  Transmission Date: 20140711
  Serious: Yes (Hospitalization, Other)
  Sender: FDA-Public Use
  Company Number: AXC-2013-000641

PATIENT
  Sex: Female

DRUGS (2)
  1. URSODEOXYCHOLIC ACID [Suspect]
     Indication: PRODUCT USED FOR UNKNOWN INDICATION
     Route: 048
  2. RITODRINE HYDROCHLORIDE (RITODRINE HYDROCHLORIDE) INFUSION UNKNOWN TO UNKNOWN [Concomitant]

REACTIONS (4)
  - Premature labour [None]
  - Premature rupture of membranes [None]
  - Maternal exposure timing unspecified [None]
  - Meconium in amniotic fluid [None]
